FAERS Safety Report 15600908 (Version 1)
Quarter: 2018Q4

REPORT INFORMATION
  Report Type: Spontaneous
  Country: US (occurrence: US)
  Receive Date: 20181108
  Receipt Date: 20181108
  Transmission Date: 20190205
  Serious: Yes (Other)
  Sender: FDA-Public Use
  Company Number: None

PATIENT
  Age: 12 Year
  Sex: Female
  Weight: 54 kg

DRUGS (1)
  1. REMICADE [Suspect]
     Active Substance: INFLIXIMAB
     Indication: CROHN^S DISEASE
     Route: 042
     Dates: start: 20180801, end: 20180817

REACTIONS (9)
  - Rash generalised [None]
  - Pruritus [None]
  - Hypoaesthesia [None]
  - Urinary incontinence [None]
  - Urticaria [None]
  - Malaise [None]
  - Skin reaction [None]
  - Electric shock [None]
  - Paraesthesia [None]

NARRATIVE: CASE EVENT DATE: 20180819
